FAERS Safety Report 12560981 (Version 1)
Quarter: 2016Q3

REPORT INFORMATION
  Report Type: Spontaneous
  Country: US (occurrence: None)
  Receive Date: 20160714
  Receipt Date: 20160714
  Transmission Date: 20161109
  Serious: Yes (Death)
  Sender: FDA-Public Use
  Company Number: None

PATIENT
  Age: 78 Year
  Sex: Female

DRUGS (3)
  1. TOBRAMYCIN 300MG [Suspect]
     Active Substance: TOBRAMYCIN
     Indication: CYSTIC FIBROSIS
     Dosage: 300MG BID NEB
     Dates: start: 20151021, end: 20160511
  2. GABAPENTIN. [Concomitant]
     Active Substance: GABAPENTIN
  3. HYDROXYCHLOROQUINE [Concomitant]
     Active Substance: HYDROXYCHLOROQUINE

REACTIONS (1)
  - Death [None]

NARRATIVE: CASE EVENT DATE: 20160603
